FAERS Safety Report 23638081 (Version 2)
Quarter: 2024Q2

REPORT INFORMATION
  Report Type: Spontaneous
  Country: IN (occurrence: IN)
  Receive Date: 20240315
  Receipt Date: 20240417
  Transmission Date: 20240716
  Serious: Yes (Death, Life-Threatening, Hospitalization, Other)
  Sender: FDA-Public Use
  Company Number: IN-AMGEN-INDSP2024048942

PATIENT
  Sex: Female

DRUGS (5)
  1. PEGFILGRASTIM [Suspect]
     Active Substance: PEGFILGRASTIM
     Indication: Prophylaxis
     Dosage: 6 MILLIGRAM (AFTER CHEMO AS IT WAS REPORTED, 3RD DAY OF EACH CYCLE)
     Route: 058
     Dates: start: 202111
  2. CYCLOPHOSPHAMIDE [Concomitant]
     Active Substance: CYCLOPHOSPHAMIDE
     Indication: Prophylaxis
     Dosage: 1000 MILLIGRAM (600 MG/M2), PER CYCLE ON DAY ONE EVERY FORTNIGHTLY
     Route: 065
     Dates: start: 202111
  3. ADRIAMYCIN [Concomitant]
     Active Substance: DOXORUBICIN HYDROCHLORIDE
     Indication: Prophylaxis
     Dosage: 100 MILLIGRAM ((60MG/M2), PER CYCLE ON DAY ONE EVERY FORTNIGHTLY
     Route: 065
     Dates: start: 202111
  4. PACLITAXEL [Concomitant]
     Active Substance: PACLITAXEL
     Indication: Prophylaxis
     Dosage: 175 MILLIGRAM/SQ. METER, EVERY FORTNIGHTLY
     Route: 065
     Dates: start: 202111
  5. POLYMYXIN [Concomitant]
     Active Substance: POLYMYXIN
     Dosage: UNK
     Route: 065
     Dates: start: 2021

REACTIONS (17)
  - Breast cancer stage I [Fatal]
  - COVID-19 [Unknown]
  - Neutropenia [Unknown]
  - Hyponatraemia [Recovering/Resolving]
  - Acute kidney injury [Unknown]
  - Blood pressure decreased [Unknown]
  - Acidosis [Unknown]
  - Anaemia [Unknown]
  - Oedema peripheral [Unknown]
  - Oral candidiasis [Unknown]
  - Paraesthesia [Unknown]
  - Thrombocytopenia [Unknown]
  - Pulmonary oedema [Unknown]
  - Cardiac failure congestive [Unknown]
  - Irritability [Unknown]
  - Restlessness [Unknown]
  - Back pain [Unknown]

NARRATIVE: CASE EVENT DATE: 20210101
